FAERS Safety Report 5726594-1 (Version None)
Quarter: 2008Q2

REPORT INFORMATION
  Report Type: 
  Country: None (occurrence: None)
  Receive Date: 20080502
  Receipt Date: 20080422
  Transmission Date: 20081010
  Serious: Yes (Hospitalization)
  Sender: FDA-Public Use
  Company Number: JP-JNJFOC-20080406620

PATIENT
  Age: 63 Year
  Sex: Male

DRUGS (1)
  1. ASPIRIN [Suspect]
     Indication: ANTIPLATELET THERAPY

REACTIONS (1)
  - ANAPHYLACTIC REACTION [None]
